FAERS Safety Report 9348819 (Version 1)
Quarter: 2013Q2

REPORT INFORMATION
  Report Type: Spontaneous
  Country: US (occurrence: US)
  Receive Date: 20130614
  Receipt Date: 20130614
  Transmission Date: 20140414
  Serious: Yes (Life-Threatening, Hospitalization, Disabling)
  Sender: FDA-Public Use
  Company Number: US-BAYER-2013-070861

PATIENT
  Sex: Female

DRUGS (1)
  1. MIRENA [Suspect]
     Dosage: 20 MCG/24HR, CONT
     Route: 015
     Dates: end: 2010

REACTIONS (10)
  - Infertility female [None]
  - Device expulsion [None]
  - Scar [None]
  - Injury [None]
  - Pain [None]
  - General physical health deterioration [None]
  - Anhedonia [None]
  - Anxiety [None]
  - Pain [None]
  - Emotional distress [None]
